FAERS Safety Report 6808225-2 (Version None)
Quarter: 2010Q2

REPORT INFORMATION
  Report Type: 
  Country: None (occurrence: None)
  Receive Date: 20100629
  Receipt Date: 20090420
  Transmission Date: 20101027
  Serious: No
  Sender: FDA-Public Use
  Company Number: US-PFIZER INC-2009201604

PATIENT
  Sex: Female
  Weight: 58 kg

DRUGS (3)
  1. TIKOSYN [Suspect]
     Indication: ARRHYTHMIA
     Dosage: 0.5 MG, 2X/DAY
     Route: 048
  2. COUMADIN [Concomitant]
     Dosage: UNK
  3. TOPROL-XL [Concomitant]
     Dosage: UNK

REACTIONS (2)
  - OROPHARYNGEAL PAIN [None]
  - SINUSITIS [None]
